FAERS Safety Report 10751149 (Version 7)
Quarter: 2017Q1

REPORT INFORMATION
  Report Type: Spontaneous
  Country: US (occurrence: US)
  Receive Date: 20150130
  Receipt Date: 20170214
  Transmission Date: 20170428
  Serious: Yes (Hospitalization)
  Sender: FDA-Public Use
  Company Number: US-PFIZER INC-2015036444

PATIENT
  Age: 60 Year
  Sex: Female
  Weight: 44.45 kg

DRUGS (5)
  1. REVATIO [Suspect]
     Active Substance: SILDENAFIL CITRATE
     Indication: RAYNAUD^S PHENOMENON
     Dosage: 20 MG, 2X/DAY
     Route: 048
  2. REVATIO [Suspect]
     Active Substance: SILDENAFIL CITRATE
     Dosage: 20 MG, 2X/DAY
     Route: 048
  3. AMLODIPINE [Concomitant]
     Active Substance: AMLODIPINE BESYLATE
     Dosage: UNK
     Dates: start: 20141208
  4. REVATIO [Suspect]
     Active Substance: SILDENAFIL CITRATE
     Indication: SYSTEMIC LUPUS ERYTHEMATOSUS
     Dosage: 20 MG, 1X/DAY
     Route: 048
     Dates: start: 20141208
  5. REVATIO [Suspect]
     Active Substance: SILDENAFIL CITRATE
     Dosage: 20 MG, 3X/DAY (EVERY 8 HOURS)
     Route: 048
     Dates: start: 2009

REACTIONS (7)
  - Ascites [Recovering/Resolving]
  - Pneumonia [Recovering/Resolving]
  - Thrombosis [Recovering/Resolving]
  - Drug ineffective for unapproved indication [Unknown]
  - Palpitations [Recovered/Resolved]
  - Weight decreased [Recovering/Resolving]
  - Intentional underdose [Unknown]

NARRATIVE: CASE EVENT DATE: 201611
